FAERS Safety Report 24665874 (Version 1)
Quarter: 2024Q4

REPORT INFORMATION
  Report Type: Spontaneous
  Country: US (occurrence: US)
  Receive Date: 20241126
  Receipt Date: 20241126
  Transmission Date: 20250115
  Serious: Yes (Other)
  Sender: INCYTE
  Company Number: US-INCYTE CORPORATION-2024IN012311

PATIENT

DRUGS (1)
  1. JAKAFI [Suspect]
     Active Substance: RUXOLITINIB
     Indication: Myelofibrosis
     Dosage: 15 MILLIGRAM (1 TABLET BY MOUTH ON MONDAY, TUESDAY, THURSDAY, SATURDAY AFTER HEMODIALYSIS)
     Route: 048
     Dates: start: 202104

REACTIONS (2)
  - Renal disorder [Unknown]
  - Ill-defined disorder [Unknown]
